FAERS Safety Report 24040254 (Version 1)
Quarter: 2024Q3

REPORT INFORMATION
  Report Type: Spontaneous
  Country: US (occurrence: US)
  Receive Date: 20240702
  Receipt Date: 20240702
  Transmission Date: 20241017
  Serious: Yes (Hospitalization)
  Sender: ACCORD
  Company Number: US-MLMSERVICE-20240613-PI097447-00050-1

PATIENT
  Age: 65 Year
  Sex: Female

DRUGS (3)
  1. AMLODIPINE [Suspect]
     Active Substance: AMLODIPINE BESYLATE
     Indication: Product used for unknown indication
     Route: 048
  2. LISINOPRIL [Concomitant]
     Active Substance: LISINOPRIL
     Indication: Suicide attempt
     Dosage: UNSPECIFIED AMOUNT
     Route: 048
  3. VALPROATE SODIUM [Concomitant]
     Active Substance: VALPROATE SODIUM
     Indication: Suicide attempt
     Dosage: UNSPECIFIED AMOUNT
     Route: 048

REACTIONS (6)
  - Hyperglycaemia [Unknown]
  - Suicide attempt [Recovering/Resolving]
  - Blood creatinine increased [Unknown]
  - Lactic acidosis [Unknown]
  - Intentional overdose [Unknown]
  - Vasoplegia syndrome [Recovering/Resolving]
